FAERS Safety Report 7406362-5 (Version None)
Quarter: 2011Q2

REPORT INFORMATION
  Report Type: 
  Country: None (occurrence: None)
  Receive Date: 20110411
  Receipt Date: 20110405
  Transmission Date: 20111010
  Serious: Yes (Other)
  Sender: FDA-Public Use
  Company Number: HU-PFIZER INC-2010174089

PATIENT
  Age: 62 Year
  Sex: Female

DRUGS (8)
  1. ATORVASTATIN [Suspect]
  2. ROSUVASTATIN [Concomitant]
     Dosage: 20 MG, UNK
  3. SORTIS [Suspect]
  4. COVEREX [Suspect]
     Dosage: UNK
  5. LOSARTAN POTASSIUM AND HYDROCHLOROTHIAZIDE [Concomitant]
     Dosage: 50/12.5 MG
  6. ASPIRIN [Concomitant]
     Dosage: 100 MG, UNK
  7. CLOPIDOGREL [Concomitant]
     Dosage: 75 MG, UNK
  8. METOPROLOL [Concomitant]
     Dosage: 25 MG, 2X/DAY

REACTIONS (5)
  - ANGIOEDEMA [None]
  - DRUG INTOLERANCE [None]
  - ABDOMINAL PAIN [None]
  - FLATULENCE [None]
  - COUGH [None]
